FAERS Safety Report 16368350 (Version 5)
Quarter: 2022Q1

REPORT INFORMATION
  Report Type: Spontaneous
  Country: JP (occurrence: JP)
  Receive Date: 20190529
  Receipt Date: 20220127
  Transmission Date: 20220423
  Serious: Yes (Hospitalization, Other)
  Sender: FDA-Public Use
  Company Number: JP-BRISTOL-MYERS SQUIBB COMPANY-BMS-2019-051804

PATIENT
  Age: 58 Year
  Sex: Male

DRUGS (1)
  1. OPDIVO [Suspect]
     Active Substance: NIVOLUMAB
     Indication: Non-small cell lung cancer recurrent
     Dosage: 3 MILLIGRAM/KILOGRAM
     Route: 041
     Dates: start: 20180524, end: 20180914

REACTIONS (6)
  - Vogt-Koyanagi-Harada disease [Recovered/Resolved]
  - Deafness neurosensory [Recovered/Resolved]
  - Adrenal insufficiency [Recovered/Resolved]
  - Diarrhoea [Recovered/Resolved]
  - Nausea [Recovered/Resolved]
  - Vomiting [Recovered/Resolved]

NARRATIVE: CASE EVENT DATE: 20180914
